FAERS Safety Report 21023377 (Version 1)
Quarter: 2022Q2

REPORT INFORMATION
  Report Type: Spontaneous
  Country: FR (occurrence: FR)
  Receive Date: 20220629
  Receipt Date: 20220629
  Transmission Date: 20220721
  Serious: Yes (Other)
  Sender: FDA-Public Use
  Company Number: FR-JNJFOC-20220642052

PATIENT
  Age: 50 Year
  Sex: Female

DRUGS (10)
  1. RITONAVIR [Suspect]
     Active Substance: RITONAVIR
     Indication: HIV-2 infection
     Route: 048
     Dates: start: 20120702, end: 201209
  2. RITONAVIR [Suspect]
     Active Substance: RITONAVIR
     Route: 048
     Dates: start: 20070806, end: 20120522
  3. VIREAD [Suspect]
     Active Substance: TENOFOVIR DISOPROXIL FUMARATE
     Indication: Hepatitis B
     Route: 065
     Dates: start: 20060627, end: 20170302
  4. VIREAD [Suspect]
     Active Substance: TENOFOVIR DISOPROXIL FUMARATE
     Indication: HIV-2 infection
  5. EMTRIVA [Suspect]
     Active Substance: EMTRICITABINE
     Indication: HIV-2 infection
     Route: 065
     Dates: start: 20060627, end: 20120522
  6. EMTRIVA [Suspect]
     Active Substance: EMTRICITABINE
     Route: 065
     Dates: start: 20160909, end: 20170302
  7. PREZISTA [Suspect]
     Active Substance: DARUNAVIR ETHANOLATE
     Indication: HIV-2 infection
     Route: 065
     Dates: start: 20070809, end: 20111212
  8. ESOMEPRAZOLE [Concomitant]
     Active Substance: ESOMEPRAZOLE
     Indication: Product used for unknown indication
  9. COTRIMOXAZOLE [Concomitant]
     Active Substance: SULFAMETHOXAZOLE\TRIMETHOPRIM
     Indication: Product used for unknown indication
  10. ZOLPIDEM [Concomitant]
     Active Substance: ZOLPIDEM TARTRATE
     Indication: Product used for unknown indication

REACTIONS (5)
  - Blood HIV RNA increased [Not Recovered/Not Resolved]
  - Genotype drug resistance test positive [Not Recovered/Not Resolved]
  - Drug intolerance [Unknown]
  - Drug ineffective [Unknown]
  - Hepatitis B DNA increased [Recovered/Resolved]

NARRATIVE: CASE EVENT DATE: 20111114
